FAERS Safety Report 5075727-1 (Version None)
Quarter: 2006Q3

REPORT INFORMATION
  Report Type: 
  Country: None (occurrence: None)
  Receive Date: 20060807
  Receipt Date: 20060807
  Transmission Date: 20061208
  Serious: Yes (Other)
  Sender: FDA-Public Use
  Company Number: None

PATIENT
  Age: 21 Year
  Sex: Female

DRUGS (2)
  1. DEMEROL [Suspect]
     Indication: PROCEDURAL PAIN
     Dosage: ONE TIME DOSE IVP
     Route: 041
     Dates: start: 20060724
  2. TORADOL [Concomitant]

REACTIONS (1)
  - PRURITUS GENERALISED [None]
